FAERS Safety Report 6503002-4 (Version None)
Quarter: 2009Q4

REPORT INFORMATION
  Report Type: 
  Country: None (occurrence: None)
  Receive Date: 20091217
  Receipt Date: 20091204
  Transmission Date: 20100525
  Serious: Yes (Other)
  Sender: FDA-Public Use
  Company Number: ES-ELI_LILLY_AND_COMPANY-ES200912001333

PATIENT
  Age: 78 Year
  Sex: Female

DRUGS (1)
  1. FORTEO [Suspect]
     Indication: SPINAL FRACTURE
     Dosage: 20 UG, UNKNOWN
     Route: 058
     Dates: start: 20090815, end: 20090928

REACTIONS (3)
  - OFF LABEL USE [None]
  - PAIN IN EXTREMITY [None]
  - PERIPHERAL EMBOLISM [None]
